FAERS Safety Report 11917254 (Version 1)
Quarter: 2016Q1

REPORT INFORMATION
  Report Type: Spontaneous
  Country: US (occurrence: US)
  Receive Date: 20160114
  Receipt Date: 20160114
  Transmission Date: 20160526
  Serious: No
  Sender: FDA-Public Use
  Company Number: US-ENDO PHARMACEUTICALS INC.-2015-002586

PATIENT
  Age: 5 Year
  Sex: Male
  Weight: 18.16 kg

DRUGS (4)
  1. SULFAMETHOXAZOLE [Concomitant]
     Active Substance: SULFAMETHOXAZOLE
     Indication: INFECTION
  2. OXYBUTYNIN CHLORIDE SYRUP [Suspect]
     Active Substance: OXYBUTYNIN CHLORIDE
     Indication: BLADDER SPASM
     Route: 048
     Dates: start: 20150822
  3. OXYBUTYNIN CHLORIDE SYRUP [Suspect]
     Active Substance: OXYBUTYNIN CHLORIDE
     Indication: URETHRAL REPAIR
  4. TYLENOL WITH CODEINE [Concomitant]
     Active Substance: ACETAMINOPHEN\CODEINE PHOSPHATE
     Indication: PROCEDURAL PAIN

REACTIONS (2)
  - Product label on wrong product [Unknown]
  - Pain [Recovering/Resolving]

NARRATIVE: CASE EVENT DATE: 20150824
